FAERS Safety Report 9767609 (Version 1)
Quarter: 2013Q4

REPORT INFORMATION
  Report Type: Spontaneous
  Country: US (occurrence: US)
  Receive Date: 20131217
  Receipt Date: 20131217
  Transmission Date: 20140711
  Serious: Yes (Hospitalization, Other)
  Sender: FDA-Public Use
  Company Number: US-PFIZER INC-2013357789

PATIENT
  Age: 17 Month
  Sex: Male

DRUGS (1)
  1. GLIPIZIDE [Suspect]
     Dosage: 10 MG, UNK

REACTIONS (5)
  - Accidental exposure to product by child [Recovered/Resolved]
  - Hypoglycaemia [Recovered/Resolved]
  - Brain oedema [Recovered/Resolved]
  - Convulsion [Recovered/Resolved]
  - Coma [Recovered/Resolved]
